FAERS Safety Report 4784014-8 (Version None)
Quarter: 2005Q3

REPORT INFORMATION
  Report Type: 
  Country: None (occurrence: None)
  Receive Date: 20050927
  Receipt Date: 20040916
  Transmission Date: 20060218
  Serious: Yes (Disabling)
  Sender: FDA-Public Use
  Company Number: WAES 0409USA01456

PATIENT
  Age: 56 Year
  Sex: Male

DRUGS (5)
  1. PROSCAR [Suspect]
     Indication: PROSTATE EXAMINATION ABNORMAL
     Dosage: 5 MG/ DAILY/ PO
     Route: 048
     Dates: start: 20040501, end: 20040826
  2. OXANDRIN [Concomitant]
  3. VIRAMUNE [Concomitant]
  4. VIREAD [Concomitant]
  5. ZIAGEN [Concomitant]

REACTIONS (1)
  - HYPERTROPHY BREAST [None]
